FAERS Safety Report 5609032-9 (Version None)
Quarter: 2008Q1

REPORT INFORMATION
  Report Type: 
  Country: None (occurrence: None)
  Receive Date: 20080131
  Receipt Date: 20080124
  Transmission Date: 20080703
  Serious: Yes (Hospitalization, Other)
  Sender: FDA-Public Use
  Company Number: JP-WYE-H01759207

PATIENT
  Sex: Male
  Weight: 61 kg

DRUGS (4)
  1. TAZOCIN [Suspect]
     Indication: CERVICAL MYELOPATHY
     Route: 041
     Dates: start: 20071130, end: 20071202
  2. MUCOSTA [Concomitant]
     Indication: GASTRITIS PROPHYLAXIS
     Route: 048
     Dates: start: 20071201, end: 20071203
  3. DASEN [Suspect]
     Indication: PROCEDURAL PAIN
     Route: 048
     Dates: start: 20071201, end: 20071203
  4. LOXONIN [Suspect]
     Indication: PROCEDURAL PAIN
     Route: 048
     Dates: start: 20071201, end: 20071203

REACTIONS (3)
  - BONE MARROW FAILURE [None]
  - THROMBOCYTOPENIA [None]
  - WHITE BLOOD CELL COUNT DECREASED [None]
